FAERS Safety Report 6336675-X (Version None)
Quarter: 2009Q3

REPORT INFORMATION
  Report Type: 
  Country: None (occurrence: None)
  Receive Date: 20090901
  Receipt Date: 20090819
  Transmission Date: 20100115
  Serious: Yes (Other)
  Sender: FDA-Public Use
  Company Number: BR-BAYER-200920800LA

PATIENT
  Age: 45 Year
  Sex: Female

DRUGS (4)
  1. BETAFERON [Suspect]
     Indication: MULTIPLE SCLEROSIS
     Route: 058
     Dates: start: 20040101
  2. PARACETAMOL [Concomitant]
     Indication: PREMEDICATION
     Dosage: 1 TABLET 2 HOURS BEFORE INJECTION
     Route: 048
     Dates: start: 20050101
  3. MANTIDAM [Concomitant]
     Indication: BALANCE DISORDER
     Route: 048
     Dates: start: 20040101
  4. BACLOFEN [Concomitant]
     Indication: MUSCLE SPASMS
     Route: 048
     Dates: start: 20040101

REACTIONS (3)
  - MUSCLE RIGIDITY [None]
  - PYREXIA [None]
  - SOMNOLENCE [None]
